FAERS Safety Report 6618766-9 (Version None)
Quarter: 2010Q1

REPORT INFORMATION
  Report Type: 
  Country: None (occurrence: None)
  Receive Date: 20100305
  Receipt Date: 20100305
  Transmission Date: 20100710
  Serious: No
  Sender: FDA-Public Use
  Company Number: None

PATIENT

DRUGS (7)
  1. SYNTHROID [Suspect]
     Indication: ANXIETY
     Dosage: 50 MCG FOR 6 WEEKS, 100 MCG FOR 6 WEEKS, 112  AFTER 2 WEEKS
     Dates: start: 20090404, end: 20090418
  2. SYNTHROID [Suspect]
     Indication: BLOOD PRESSURE
     Dosage: 50 MCG FOR 6 WEEKS, 100 MCG FOR 6 WEEKS, 112  AFTER 2 WEEKS
     Dates: start: 20090404, end: 20090418
  3. SYNTHROID [Suspect]
     Indication: BODY TEMPERATURE INCREASED
     Dosage: 50 MCG FOR 6 WEEKS, 100 MCG FOR 6 WEEKS, 112  AFTER 2 WEEKS
     Dates: start: 20090404, end: 20090418
  4. SYNTHROID [Suspect]
     Indication: DEPRESSION
     Dosage: 50 MCG FOR 6 WEEKS, 100 MCG FOR 6 WEEKS, 112  AFTER 2 WEEKS
     Dates: start: 20090404, end: 20090418
  5. SYNTHROID [Suspect]
     Indication: FATIGUE
     Dosage: 50 MCG FOR 6 WEEKS, 100 MCG FOR 6 WEEKS, 112  AFTER 2 WEEKS
     Dates: start: 20090404, end: 20090418
  6. SYNTHROID [Suspect]
     Indication: JOINT CREPITATION
     Dosage: 50 MCG FOR 6 WEEKS, 100 MCG FOR 6 WEEKS, 112  AFTER 2 WEEKS
     Dates: start: 20090404, end: 20090418
  7. SYNTHROID [Suspect]
     Indication: PAIN
     Dosage: 50 MCG FOR 6 WEEKS, 100 MCG FOR 6 WEEKS, 112  AFTER 2 WEEKS
     Dates: start: 20090404, end: 20090418

REACTIONS (21)
  - ANXIETY [None]
  - ASTHENIA [None]
  - BLOOD CORTISOL DECREASED [None]
  - BLOOD THYROID STIMULATING HORMONE DECREASED [None]
  - BODY TEMPERATURE INCREASED [None]
  - DEPRESSION [None]
  - DRUG INEFFECTIVE [None]
  - FATIGUE [None]
  - FEELING ABNORMAL [None]
  - HOT FLUSH [None]
  - HYPERTENSION [None]
  - IRRITABILITY [None]
  - JOINT CREPITATION [None]
  - MUSCLE TWITCHING [None]
  - MYALGIA [None]
  - NERVOUSNESS [None]
  - PAIN IN EXTREMITY [None]
  - PALPITATIONS [None]
  - TREMOR [None]
  - TRI-IODOTHYRONINE FREE INCREASED [None]
  - VITAMIN D DECREASED [None]
